FAERS Safety Report 6962311-5 (Version None)
Quarter: 2010Q3

REPORT INFORMATION
  Report Type: 
  Country: None (occurrence: None)
  Receive Date: 20100902
  Receipt Date: 20100820
  Transmission Date: 20110219
  Serious: Yes (Other)
  Sender: FDA-Public Use
  Company Number: GB-ELI_LILLY_AND_COMPANY-GB201007004738

PATIENT
  Age: 73 Year
  Sex: Female
  Weight: 55 kg

DRUGS (4)
  1. YENTREVE [Suspect]
     Indication: URINARY INCONTINENCE
     Dosage: 40 MG, DAILY (1/D)
     Route: 048
     Dates: start: 20070101, end: 20100101
  2. CODEINE PHOSPHATE [Concomitant]
     Dosage: UNK, UNKNOWN
     Route: 065
  3. COD LIVER OIL [Concomitant]
     Dosage: UNK, UNKNOWN
     Route: 065
  4. EVENING PRIMROSE OIL [Concomitant]
     Dosage: UNK, UNKNOWN
     Route: 065

REACTIONS (3)
  - CHEST PAIN [None]
  - NAUSEA [None]
  - WITHDRAWAL SYNDROME [None]
